FAERS Safety Report 5960980-X (Version None)
Quarter: 2008Q4

REPORT INFORMATION
  Report Type: 
  Country: None (occurrence: None)
  Receive Date: 20081119
  Receipt Date: 20081104
  Transmission Date: 20090506
  Serious: Yes (Hospitalization)
  Sender: FDA-Public Use
  Company Number: SPVI-2008-02271

PATIENT
  Age: 59 Year
  Sex: Male
  Weight: 77.1 kg

DRUGS (4)
  1. LIALDA [Suspect]
     Indication: CROHN'S DISEASE
     Dosage: 1X/DAY:QD, ORAL
     Route: 048
     Dates: start: 20081001, end: 20081018
  2. LIPITOR [Concomitant]
  3. ACIPHEX [Concomitant]
  4. PREDNISONE [Concomitant]

REACTIONS (3)
  - GASTROENTERITIS VIRAL [None]
  - MYOCARDITIS [None]
  - OFF LABEL USE [None]
